FAERS Safety Report 23747617 (Version 1)
Quarter: 2024Q2

REPORT INFORMATION
  Report Type: Spontaneous
  Country: GB (occurrence: GB)
  Receive Date: 20240416
  Receipt Date: 20240416
  Transmission Date: 20240716
  Serious: Yes (Hospitalization)
  Sender: FDA-Public Use
  Company Number: GB-BAXTER-2024BAX012091

PATIENT
  Sex: Female
  Weight: 87 kg

DRUGS (4)
  1. SODIUM CHLORIDE [Suspect]
     Active Substance: SODIUM CHLORIDE
     Indication: Medication dilution
     Dosage: AT AN UNSPECIFIED DOSE 8 WEEKLY
     Route: 042
  2. WATER FOR INJECTION [Suspect]
     Active Substance: WATER
     Indication: Medication dilution
     Dosage: AT AN UNSPECIFIED DOSE 8 WEEKLY
     Route: 042
  3. INFLIXIMAB [Suspect]
     Active Substance: INFLIXIMAB
     Indication: Crohn^s disease
     Dosage: 435 MG 8 WEEKLY (STRENGTH: 5MG/KG)
     Route: 042
  4. PENICILLIN [Suspect]
     Active Substance: PENICILLIN
     Dosage: UNK
     Route: 065

REACTIONS (12)
  - Malaise [Unknown]
  - Psoriasis [Unknown]
  - Stress [Unknown]
  - Rash [Recovered/Resolved]
  - Rash erythematous [Recovered/Resolved]
  - Weight decreased [Unknown]
  - Fatigue [Unknown]
  - Poor venous access [Unknown]
  - Abdominal pain upper [Recovered/Resolved]
  - Adverse drug reaction [Unknown]
  - Furuncle [Unknown]
  - Alopecia [Unknown]
